FAERS Safety Report 7319432-7 (Version None)
Quarter: 2011Q1

REPORT INFORMATION
  Report Type: 
  Country: None (occurrence: None)
  Receive Date: 20110228
  Receipt Date: 20100423
  Transmission Date: 20110831
  Serious: No
  Sender: FDA-Public Use
  Company Number: A0851373A

PATIENT
  Age: 18 Year

DRUGS (2)
  1. ABILIFY [Concomitant]
  2. LAMICTAL [Suspect]
     Dosage: 50MG PER DAY
     Route: 048
     Dates: start: 20100201

REACTIONS (2)
  - DERMATITIS CONTACT [None]
  - RASH [None]
